FAERS Safety Report 9156688 (Version 1)
Quarter: 2013Q1

REPORT INFORMATION
  Report Type: Spontaneous
  Country: IT (occurrence: None)
  Receive Date: 20130208
  Receipt Date: 20130208
  Transmission Date: 20140127
  Serious: Yes (Hospitalization, Other)
  Sender: FDA-Public Use
  Company Number: 2013000014

PATIENT
  Age: 54 Year
  Sex: Female

DRUGS (8)
  1. ACEON (PERINDOPRIL ERBUMINE) TABLET [Suspect]
     Dosage: 1 TABLET
     Dates: start: 20111116, end: 20121115
  2. AULIN [Suspect]
     Dosage: SINGLE
     Route: 048
     Dates: start: 20121114, end: 20121114
  3. METFORMINE [Suspect]
  4. SIMVASTATIN [Suspect]
  5. CARDICOR (BISOPROLOL FUMARATE) [Concomitant]
  6. ACTOS (PIOGLITAZONE HYDROCHLORIDE) [Concomitant]
  7. MODURETIC (AMILORIDE HYDROCHLORIDE, HYDROCHLOROTHIAZIDE) [Concomitant]
  8. AGGRENOX (ACETYLSALICYLIC ACID, DIPYRIDAMOLE) [Concomitant]

REACTIONS (2)
  - C-reactive protein increased [None]
  - Hypertransaminasaemia [None]
